FAERS Safety Report 19243635 (Version 2)
Quarter: 2021Q2

REPORT INFORMATION
  Report Type: Other
  Country: US (occurrence: US)
  Receive Date: 20210511
  Receipt Date: 20210517
  Transmission Date: 20210717
  Serious: Yes (Other)
  Sender: FDA-Public Use
  Company Number: US-ROCHE-2823354

PATIENT
  Sex: Female

DRUGS (1)
  1. OCREVUS [Suspect]
     Active Substance: OCRELIZUMAB
     Indication: RELAPSING MULTIPLE SCLEROSIS
     Dosage: 300 MG ON DAY 1 AND 15, THEN 600 MG ONCE IN 6 MONTHS?DATE OF TREATMENT: 08/APR/2021
     Route: 065
     Dates: start: 20210325

REACTIONS (3)
  - Infusion related reaction [Recovered/Resolved]
  - Multiple sclerosis [Unknown]
  - Urinary tract infection [Not Recovered/Not Resolved]
